FAERS Safety Report 11594315 (Version 1)
Quarter: 2015Q4

REPORT INFORMATION
  Report Type: Spontaneous
  Country: US (occurrence: US)
  Receive Date: 20151005
  Receipt Date: 20151005
  Transmission Date: 20160304
  Serious: No
  Sender: FDA-Public Use
  Company Number: US-BAYER-2015-128104

PATIENT
  Age: 18 Year
  Sex: Male

DRUGS (1)
  1. MACROGOL 3350 [Suspect]
     Active Substance: POLYETHYLENE GLYCOL 3350
     Indication: PRODUCT USED FOR UNKNOWN INDICATION
     Dosage: 51 G, QD
     Route: 048

REACTIONS (5)
  - Abdominal distension [Unknown]
  - Drug prescribing error [Unknown]
  - Product use issue [Unknown]
  - Product taste abnormal [Unknown]
  - Drug ineffective [Unknown]
